FAERS Safety Report 9198675 (Version 1)
Quarter: 2013Q1

REPORT INFORMATION
  Report Type: Spontaneous
  Country: JP (occurrence: JP)
  Receive Date: 20130329
  Receipt Date: 20130329
  Transmission Date: 20140127
  Serious: Yes (Other)
  Sender: FDA-Public Use
  Company Number: JP-PFIZER INC-2013102089

PATIENT
  Sex: Male

DRUGS (6)
  1. SOLANAX [Suspect]
     Dosage: 0.2 MG, 3X/DAY
     Route: 048
  2. CRAVIT [Concomitant]
     Dosage: UNK
  3. LIVALO [Concomitant]
     Dosage: UNK
  4. ZETIA [Concomitant]
     Dosage: UNK
  5. EMPYNASE P [Concomitant]
     Dosage: UNK
  6. MEDICON [Concomitant]
     Dosage: UNK

REACTIONS (1)
  - Pneumonia [Unknown]
